FAERS Safety Report 6894012-6 (Version None)
Quarter: 2010Q3

REPORT INFORMATION
  Report Type: 
  Country: None (occurrence: None)
  Receive Date: 20100802
  Receipt Date: 20100713
  Transmission Date: 20110219
  Serious: Yes (Hospitalization, Other)
  Sender: FDA-Public Use
  Company Number: GB-RANBAXY-2010RR-36124

PATIENT
  Age: 24 Year
  Sex: Female

DRUGS (4)
  1. DICLOFENAC SODIUM [Suspect]
  2. ACETAMINOPHEN [Suspect]
  3. TRAMADOL HYDROCHLORIDE [Suspect]
  4. TRIMETHOPRIM [Suspect]

REACTIONS (14)
  - ABDOMINAL PAIN [None]
  - AREFLEXIA [None]
  - BLOOD SODIUM DECREASED [None]
  - CHROMATURIA [None]
  - CONDITION AGGRAVATED [None]
  - CONFUSIONAL STATE [None]
  - CONVULSION [None]
  - DEHYDRATION [None]
  - HYPOTENSION [None]
  - LIBIDO DISORDER [None]
  - LOSS OF CONSCIOUSNESS [None]
  - PORPHYRIA ACUTE [None]
  - TACHYCARDIA [None]
  - URINARY INCONTINENCE [None]
